FAERS Safety Report 9639503 (Version 1)
Quarter: 2013Q4

REPORT INFORMATION
  Report Type: Spontaneous
  Country: US (occurrence: US)
  Receive Date: 20131023
  Receipt Date: 20131023
  Transmission Date: 20140711
  Serious: No
  Sender: FDA-Public Use
  Company Number: US-B.I. PHARMACEUTICALS,INC./RIDGEFIELD-2013-BI-32268BP

PATIENT
  Age: 70 Year
  Sex: Female
  Weight: 109 kg

DRUGS (17)
  1. COMBIVENT [Suspect]
     Indication: CHRONIC OBSTRUCTIVE PULMONARY DISEASE
     Dosage: DOSE PER APPLICATION: 20 MCG / 100 MCG; DAILY DOSE: 80 MCG/ 400 MCG
     Route: 055
     Dates: start: 201306
  2. ATORVASTATIN [Concomitant]
     Indication: BLOOD CHOLESTEROL INCREASED
     Dosage: 10 MG
     Route: 048
  3. METFORMIN [Concomitant]
     Indication: DIABETES MELLITUS
     Dosage: 1500 MG
     Route: 048
  4. METOPROLOL [Concomitant]
     Indication: ATRIAL FIBRILLATION
     Dosage: 100 MG
     Route: 048
  5. GARLIC [Concomitant]
     Route: 042
  6. SYNTHROID [Concomitant]
     Indication: HYPOTHYROIDISM
     Dosage: 150 MCG
     Route: 048
  7. ZOLOFT [Concomitant]
     Indication: DEPRESSION
     Dosage: 25 MG
     Route: 048
  8. FISH OIL [Concomitant]
     Route: 048
  9. VITAMIN E [Concomitant]
     Dosage: FORMULATION: CAPLET
     Route: 048
  10. DIOVAN [Concomitant]
     Indication: HYPERTENSION
     Dosage: 160 MG
     Route: 048
  11. LANTUS INSULIN [Concomitant]
     Indication: DIABETES MELLITUS
     Dosage: 130 U
     Route: 058
  12. DILTIAZEM [Concomitant]
     Indication: ATRIAL FIBRILLATION
     Dosage: 240 MG
     Route: 048
  13. VITAMIN D [Concomitant]
     Route: 048
  14. PANTOPRAZOLE [Concomitant]
     Dosage: 40 MG
     Route: 048
  15. CLOPIDOGREL [Concomitant]
     Dosage: 75 MG
     Route: 048
  16. IPRATROPIUM NEBULIZER [Concomitant]
     Indication: CHRONIC OBSTRUCTIVE PULMONARY DISEASE
     Dosage: FORMULATION: INHALATION SOLUTION
     Route: 055
  17. OXYGEN 2L [Concomitant]
     Dosage: DAILY DOSE: 2 L/ MIN AT NIGHT

REACTIONS (2)
  - Drug effect delayed [Not Recovered/Not Resolved]
  - Overdose [Not Recovered/Not Resolved]
